FAERS Safety Report 4547201-X (Version None)
Quarter: 2005Q1

REPORT INFORMATION
  Report Type: 
  Country: None (occurrence: None)
  Receive Date: 20050105
  Receipt Date: 20041220
  Transmission Date: 20050727
  Serious: Yes (Hospitalization, Other)
  Sender: FDA-Public Use
  Company Number: 207751

PATIENT
  Age: 57 Year
  Sex: Female
  Weight: 54.4316 kg

DRUGS (18)
  1. AVONEX [Suspect]
     Indication: MULTIPLE SCLEROSIS
     Dosage: 30 UG; QW; IM
     Route: 030
     Dates: start: 20000101
  2. AVONEX [Suspect]
     Indication: MULTIPLE SCLEROSIS
     Dosage: 30 UG; QW; IM
     Route: 030
     Dates: end: 20040301
  3. POTASSIUM [Concomitant]
  4. VITAMIN AND MINERAL PRENATAL SUPPLEMENT W/ FOLIC ACID CAP [Concomitant]
  5. HYDROCHLOROTHIAZIDE [Concomitant]
  6. FEOSOL [Concomitant]
  7. PROVIGIL [Concomitant]
  8. HYDROCODONE [Concomitant]
  9. PROZAC [Concomitant]
  10. SINGULAIR [Concomitant]
  11. XANAX [Concomitant]
  12. LIPITOR [Concomitant]
  13. ATENOLOL [Concomitant]
  14. ASPIRIN [Concomitant]
  15. ISOSORBIDE [Concomitant]
  16. ACCUPRIL [Concomitant]
  17. PREMARIN [Concomitant]
  18. AVINZA [Concomitant]

REACTIONS (9)
  - CEREBRAL INFARCTION [None]
  - CEREBROVASCULAR ACCIDENT [None]
  - CONFUSIONAL STATE [None]
  - ENCEPHALOPATHY [None]
  - GASTRIC ULCER [None]
  - HALLUCINATION [None]
  - HYPERLIPIDAEMIA [None]
  - HYPERTENSION [None]
  - MYOCARDIAL INFARCTION [None]
